FAERS Safety Report 19883805 (Version 1)
Quarter: 2021Q3

REPORT INFORMATION
  Report Type: Spontaneous
  Country: US (occurrence: US)
  Receive Date: 20210923
  Receipt Date: 20210923
  Transmission Date: 20211014
  Serious: No
  Sender: FDA-Public Use
  Company Number: None

PATIENT
  Age: 79 Year
  Sex: Male
  Weight: 85 kg

DRUGS (1)
  1. PIPERACILLIN/TAZOBACTAM (PIPERACILLIN NA 3GM/TAZOBACTAM 0.37GM/50ML [Suspect]
     Active Substance: PIPERACILLIN SODIUM\TAZOBACTAM SODIUM
     Indication: UPPER RESPIRATORY TRACT INFECTION
     Route: 042
     Dates: start: 20210716, end: 20210719

REACTIONS (7)
  - Neutropenia [None]
  - Thrombocytopenia [None]
  - Anaemia [None]
  - Urinary tract infection [None]
  - Infection [None]
  - Bladder cancer recurrent [None]
  - Pulmonary mass [None]

NARRATIVE: CASE EVENT DATE: 20210727
